FAERS Safety Report 25127599 (Version 1)
Quarter: 2025Q1

REPORT INFORMATION
  Report Type: Spontaneous
  Country: US (occurrence: US)
  Receive Date: 20250327
  Receipt Date: 20250327
  Transmission Date: 20250409
  Serious: Yes (Other)
  Sender: ALKEM
  Company Number: US-ALKEM LABORATORIES LIMITED-US-ALKEM-2024-11878

PATIENT
  Age: 34 Year
  Sex: Male

DRUGS (7)
  1. CLOZAPINE [Suspect]
     Active Substance: CLOZAPINE
     Indication: Bipolar disorder
     Route: 065
  2. CLOZAPINE [Suspect]
     Active Substance: CLOZAPINE
     Dosage: UNK, QD (TITRATED OVER 3 MONTHS FROM 100 TO 450 MILLIGRAM DAILY
     Route: 065
  3. CLOZAPINE [Suspect]
     Active Substance: CLOZAPINE
     Dosage: 50 MILLIGRAM, QD (LOW DOSE)
     Route: 065
  4. CLOZAPINE [Suspect]
     Active Substance: CLOZAPINE
     Dosage: 50 MILLIGRAM, TID (2 WEEKS)
     Route: 065
  5. QUETIAPINE FUMARATE [Interacting]
     Active Substance: QUETIAPINE FUMARATE
     Indication: Bipolar disorder
     Dosage: 400 MILLIGRAM, BID
     Route: 065
  6. QUETIAPINE FUMARATE [Interacting]
     Active Substance: QUETIAPINE FUMARATE
     Dosage: 50 MILLIGRAM, QD
     Route: 065
  7. BENZTROPINE [Interacting]
     Active Substance: BENZTROPINE
     Indication: Bipolar disorder
     Dosage: 1 MILLIGRAM, BID
     Route: 065

REACTIONS (2)
  - Gastrointestinal hypomotility [Unknown]
  - Drug interaction [Unknown]
